FAERS Safety Report 26015790 (Version 2)
Quarter: 2025Q4

REPORT INFORMATION
  Report Type: Spontaneous
  Country: JP (occurrence: JP)
  Receive Date: 20251109
  Receipt Date: 20251204
  Transmission Date: 20260117
  Serious: Yes (Hospitalization, Other)
  Sender: AMGEN
  Company Number: JP-DSJP-DS-2025-173966-

PATIENT
  Age: 66 Year
  Sex: Female

DRUGS (3)
  1. DENOSUMAB [Suspect]
     Active Substance: DENOSUMAB
     Indication: Osteoporosis
     Dosage: 60 MG, ONCE EVERY 6 MO
     Route: 058
     Dates: start: 20220713, end: 20240131
  2. RISEDRONATE SODIUM [Suspect]
     Active Substance: RISEDRONATE SODIUM
     Indication: Osteoporosis
     Dosage: UNK
     Route: 065
     Dates: start: 2014, end: 2022
  3. PREDONINE [Concomitant]
     Active Substance: PREDNISOLONE
     Indication: Rheumatoid arthritis
     Dosage: 5 MG, QD
     Route: 065
     Dates: start: 2000

REACTIONS (1)
  - Atypical fracture [Recovered/Resolved]
